FAERS Safety Report 19169180 (Version 1)
Quarter: 2021Q2

REPORT INFORMATION
  Report Type: Spontaneous
  Country: US (occurrence: US)
  Receive Date: 20210422
  Receipt Date: 20210422
  Transmission Date: 20210717
  Serious: No
  Sender: FDA-Public Use
  Company Number: US-CELGENEUS-USA-20210403127

PATIENT
  Sex: Female

DRUGS (1)
  1. REVLIMID [Suspect]
     Active Substance: LENALIDOMIDE
     Indication: PLASMA CELL MYELOMA
     Dosage: 10 MILLIGRAM
     Route: 048
     Dates: start: 20200801

REACTIONS (8)
  - Platelet count decreased [Unknown]
  - Vision blurred [Unknown]
  - Pruritus [Unknown]
  - Back pain [Unknown]
  - Constipation [Unknown]
  - Memory impairment [Unknown]
  - Balance disorder [Unknown]
  - Heart rate decreased [Unknown]
